FAERS Safety Report 19089447 (Version 1)
Quarter: 2021Q2

REPORT INFORMATION
  Report Type: Spontaneous
  Country: CN (occurrence: CN)
  Receive Date: 20210403
  Receipt Date: 20210403
  Transmission Date: 20210717
  Serious: Yes (Death, Life-Threatening, Hospitalization, Other)
  Sender: FDA-Public Use
  Company Number: CN-ACCORD-221157

PATIENT
  Age: 32 Year
  Sex: Female

DRUGS (3)
  1. ADALAT [Concomitant]
     Active Substance: NIFEDIPINE
     Indication: RENOVASCULAR HYPERTENSION
  2. TACROLIMUS. [Suspect]
     Active Substance: TACROLIMUS
     Indication: IMMUNOSUPPRESSANT DRUG THERAPY
  3. PREDNISONE. [Suspect]
     Active Substance: PREDNISONE
     Indication: IMMUNOSUPPRESSANT DRUG THERAPY

REACTIONS (13)
  - Pancreatitis [Fatal]
  - Disseminated intravascular coagulation [Fatal]
  - Urethral haemorrhage [Fatal]
  - Renal atrophy [Fatal]
  - Haemorrhagic varicella syndrome [Fatal]
  - Liver function test abnormal [Fatal]
  - Respiratory failure [Fatal]
  - Blood creatine phosphokinase increased [Fatal]
  - Blister [Fatal]
  - Lung opacity [Fatal]
  - Conjunctival haemorrhage [Fatal]
  - Circulatory collapse [Fatal]
  - Vaginal haemorrhage [Fatal]
